FAERS Safety Report 17356107 (Version 1)
Quarter: 2020Q1

REPORT INFORMATION
  Report Type: Spontaneous
  Country: US (occurrence: US)
  Receive Date: 20200131
  Receipt Date: 20200131
  Transmission Date: 20200409
  Serious: Yes (Other)
  Sender: FDA-Public Use
  Company Number: US-CATALYST PHARMACEUTICALS, INC-2020CAT00013

PATIENT
  Sex: Female
  Weight: 106.58 kg

DRUGS (3)
  1. FIRDAPSE [Suspect]
     Active Substance: AMIFAMPRIDINE
     Dosage: 10 MG, 4X/DAY
     Route: 048
  2. CELLCEPT [Concomitant]
     Active Substance: MYCOPHENOLATE MOFETIL\MYCOPHENOLATE MOFETIL HYDROCHLORIDE
  3. FIRDAPSE [Suspect]
     Active Substance: AMIFAMPRIDINE
     Indication: MYASTHENIC SYNDROME
     Dosage: 10 MG, 3-4 TIMES DAILY, AS NEEDED
     Route: 048
     Dates: start: 2019, end: 201911

REACTIONS (7)
  - Rheumatoid arthritis [Unknown]
  - Fatigue [Recovered/Resolved]
  - Body temperature decreased [Recovered/Resolved]
  - Somnolence [Recovered/Resolved]
  - Feeling cold [Recovered/Resolved]
  - Chills [Recovered/Resolved]
  - Therapeutic product effect incomplete [Not Recovered/Not Resolved]
